FAERS Safety Report 6390958-6 (Version None)
Quarter: 2009Q4

REPORT INFORMATION
  Report Type: 
  Country: None (occurrence: None)
  Receive Date: 20091001
  Receipt Date: 20090317
  Transmission Date: 20100525
  Serious: Yes (Other)
  Sender: FDA-Public Use
  Company Number: 188534USA

PATIENT

DRUGS (5)
  1. VALPROIC ACID [Suspect]
  2. CARBAMAZEPINE [Suspect]
  3. MAGADON [Suspect]
  4. PHENYTOIN [Suspect]
  5. PHENOBARBITAL SOD INJ [Suspect]

REACTIONS (2)
  - CONVULSION [None]
  - DRUG INEFFECTIVE [None]
